FAERS Safety Report 9323511 (Version 2)
Quarter: 2013Q2

REPORT INFORMATION
  Report Type: Spontaneous
  Country: US (occurrence: US)
  Receive Date: 20130603
  Receipt Date: 20130628
  Transmission Date: 20140414
  Serious: No
  Sender: FDA-Public Use
  Company Number: US-PFIZER INC-2013167601

PATIENT
  Age: 61 Year
  Sex: Female

DRUGS (6)
  1. NEURONTIN [Suspect]
     Indication: SCIATICA
     Dosage: 300 MG, 2X/DAY
     Route: 048
     Dates: start: 201304, end: 201304
  2. LIPITOR [Concomitant]
     Indication: HYPERLIPIDAEMIA
     Dosage: 40 UNK, ONCE DAILY
     Dates: start: 20120905
  3. DEXILANT [Concomitant]
     Indication: GASTRITIS
     Dosage: 60 UNK, QD
     Dates: start: 20120905
  4. ASA [Concomitant]
     Indication: ROUTINE HEALTH MAINTENANCE
     Dosage: 81 MG, UNK
  5. OSCAL [Concomitant]
     Indication: ROUTINE HEALTH MAINTENANCE
     Dosage: UNK
  6. CO-Q-10 [Concomitant]
     Indication: ROUTINE HEALTH MAINTENANCE
     Dosage: UNK

REACTIONS (5)
  - Off label use [Unknown]
  - Headache [Recovered/Resolved]
  - Pruritus generalised [Recovered/Resolved]
  - Dizziness [Recovered/Resolved]
  - Drug hypersensitivity [Unknown]
